FAERS Safety Report 7490727-X (Version None)
Quarter: 2011Q2

REPORT INFORMATION
  Report Type: 
  Country: None (occurrence: None)
  Receive Date: 20110517
  Receipt Date: 20110517
  Transmission Date: 20111010
  Serious: Yes (Other)
  Sender: FDA-Public Use
  Company Number: None

PATIENT
  Age: 64 Year
  Sex: Male
  Weight: 103.4201 kg

DRUGS (2)
  1. ATENOLOL [Suspect]
     Indication: HYPERTENSION
     Dosage: TAKE ONE TABLET TWICE DAILY PO
     Route: 048
     Dates: start: 20110223, end: 20110316
  2. ATENOLOL [Suspect]
     Indication: TACHYCARDIA
     Dosage: TAKE ONE TABLET TWICE DAILY PO
     Route: 048
     Dates: start: 20110223, end: 20110316

REACTIONS (3)
  - PRODUCT SUBSTITUTION ISSUE [None]
  - BLOOD PRESSURE INCREASED [None]
  - HEART RATE INCREASED [None]
